FAERS Safety Report 12855449 (Version 4)
Quarter: 2017Q1

REPORT INFORMATION
  Report Type: Report from Study
  Country: US (occurrence: US)
  Receive Date: 20161017
  Receipt Date: 20170105
  Transmission Date: 20170428
  Serious: Yes (Hospitalization, Other)
  Sender: FDA-Public Use
  Company Number: US-ACTELION-A-NJ2016-132106

PATIENT
  Age: 72 Year
  Sex: Male

DRUGS (3)
  1. COUMADIN [Concomitant]
     Active Substance: WARFARIN SODIUM
  2. SILDENAFIL. [Concomitant]
     Active Substance: SILDENAFIL
  3. VELETRI [Suspect]
     Active Substance: EPOPROSTENOL
     Indication: PULMONARY ARTERIAL HYPERTENSION
     Dosage: 22 NG/KG, PER MIN
     Route: 042
     Dates: start: 20120615

REACTIONS (9)
  - Urinary tract infection [Unknown]
  - Fall [Unknown]
  - Weight decreased [Unknown]
  - Suture related complication [Unknown]
  - Head injury [Unknown]
  - Arthralgia [Unknown]
  - Cough [Unknown]
  - Tremor [Unknown]
  - Cerebral haemorrhage [Unknown]
